FAERS Safety Report 7711168-3 (Version None)
Quarter: 2011Q3

REPORT INFORMATION
  Report Type: 
  Country: None (occurrence: None)
  Receive Date: 20110826
  Receipt Date: 20110816
  Transmission Date: 20111222
  Serious: No
  Sender: FDA-Public Use
  Company Number: US-BIOGENIDEC-2011BI031648

PATIENT
  Sex: Female

DRUGS (1)
  1. TYSABRI [Suspect]
     Indication: MULTIPLE SCLEROSIS
     Route: 042
     Dates: start: 20100609

REACTIONS (6)
  - FEELING HOT [None]
  - WEIGHT DECREASED [None]
  - HYPOTENSION [None]
  - STRESS [None]
  - DEPRESSED MOOD [None]
  - APHAGIA [None]
